FAERS Safety Report 18229641 (Version 2)
Quarter: 2020Q3

REPORT INFORMATION
  Report Type: Spontaneous
  Country: DE (occurrence: GR)
  Receive Date: 20200903
  Receipt Date: 20200916
  Transmission Date: 20201103
  Serious: Yes (Hospitalization, Other)
  Sender: FDA-Public Use
  Company Number: GR-PFIZER INC-2020336819

PATIENT
  Age: 65 Year
  Sex: Female

DRUGS (7)
  1. PREDNISONE. [Suspect]
     Active Substance: PREDNISONE
     Indication: LARGE GRANULAR LYMPHOCYTOSIS
     Dosage: UNK
     Route: 065
  2. METHYLPREDNISOLONE SODIUM SUCCINATE. [Suspect]
     Active Substance: METHYLPREDNISOLONE SODIUM SUCCINATE
     Indication: LARGE GRANULAR LYMPHOCYTOSIS
     Dosage: 6 MG, 1X/DAY
  3. PREDNISONE. [Suspect]
     Active Substance: PREDNISONE
     Indication: METASTASES TO KIDNEY
     Dosage: UNK
  4. VINCRISTINE [Suspect]
     Active Substance: VINCRISTINE
     Indication: LARGE GRANULAR LYMPHOCYTOSIS
     Dosage: UNK
  5. CYCLOPHOSPHAMIDE. [Suspect]
     Active Substance: CYCLOPHOSPHAMIDE
     Indication: LARGE GRANULAR LYMPHOCYTOSIS
     Dosage: UNK
  6. CYCLOPHOSPHAMIDE. [Suspect]
     Active Substance: CYCLOPHOSPHAMIDE
     Indication: METASTASES TO KIDNEY
     Dosage: UNK
  7. VINCRISTINE [Suspect]
     Active Substance: VINCRISTINE
     Indication: METASTASES TO KIDNEY
     Dosage: UNK

REACTIONS (6)
  - Drug ineffective [Unknown]
  - Diabetes mellitus [Unknown]
  - Sepsis [Recovered/Resolved]
  - Myopathy [Unknown]
  - Pneumonia [Recovered/Resolved]
  - Osteoporosis [Unknown]
